FAERS Safety Report 9181274 (Version 1)
Quarter: 2013Q1

REPORT INFORMATION
  Report Type: Spontaneous
  Country: US (occurrence: US)
  Receive Date: 20130322
  Receipt Date: 20130322
  Transmission Date: 20140127
  Serious: No
  Sender: FDA-Public Use
  Company Number: US-MYLANLABS-2012S1025827

PATIENT
  Age: 57 Year
  Sex: Male

DRUGS (3)
  1. EMSAM [Suspect]
     Indication: DEPRESSION
     Dosage: CHANGED Q24
     Route: 062
     Dates: start: 2006
  2. EMSAM [Suspect]
     Indication: DEPRESSION
     Dosage: Q24
     Route: 062
     Dates: end: 201108
  3. ABILIFY [Suspect]
     Indication: PARKINSON^S DISEASE
     Dates: start: 2006, end: 201108

REACTIONS (5)
  - Overdose [Recovered/Resolved]
  - Muscle disorder [Not Recovered/Not Resolved]
  - Local swelling [Not Recovered/Not Resolved]
  - Rash generalised [Not Recovered/Not Resolved]
  - Wrong technique in drug usage process [None]
